FAERS Safety Report 9684909 (Version 1)
Quarter: 2013Q4

REPORT INFORMATION
  Report Type: Spontaneous
  Country: US (occurrence: US)
  Receive Date: 20131113
  Receipt Date: 20131113
  Transmission Date: 20140711
  Serious: Yes (Death)
  Sender: FDA-Public Use
  Company Number: US-ROCHE-1303314

PATIENT
  Sex: Male

DRUGS (11)
  1. AVASTIN [Suspect]
     Indication: RENAL CANCER
     Route: 065
     Dates: start: 20100510
  2. AVASTIN [Suspect]
     Dosage: SUBSEQUENT DOSE: 31/JAN/2011
     Route: 065
     Dates: start: 20110117
  3. TORISEL [Concomitant]
  4. INTERFERON ALFA-2A [Concomitant]
     Route: 065
  5. DEXAMETHASONE [Concomitant]
  6. NACL .9% [Concomitant]
     Route: 065
  7. BENADRYL (UNITED STATES) [Concomitant]
  8. DEMEROL [Concomitant]
     Route: 030
  9. ZOFRAN [Concomitant]
     Route: 042
  10. INTERFERON ALFA-2B [Concomitant]
     Route: 058
  11. TYLENOL [Concomitant]
     Route: 048

REACTIONS (1)
  - Death [Fatal]
